FAERS Safety Report 6153350-5 (Version None)
Quarter: 2009Q2

REPORT INFORMATION
  Report Type: 
  Country: None (occurrence: None)
  Receive Date: 20090409
  Receipt Date: 20090325
  Transmission Date: 20091009
  Serious: Yes (Hospitalization)
  Sender: FDA-Public Use
  Company Number: 2009S1005205

PATIENT
  Age: 14 Year
  Sex: Male

DRUGS (1)
  1. DOXYCYCLINE [Suspect]
     Indication: ACNE
     Dosage: 100 MG; DAILY; ORAL
     Route: 048

REACTIONS (6)
  - ARRHYTHMIA [None]
  - BUNDLE BRANCH BLOCK [None]
  - CHEST PAIN [None]
  - MALAISE [None]
  - PALPITATIONS [None]
  - VISION BLURRED [None]
